FAERS Safety Report 21934643 (Version 1)
Quarter: 2023Q1

REPORT INFORMATION
  Report Type: Spontaneous
  Country: GB (occurrence: GB)
  Receive Date: 20230201
  Receipt Date: 20230201
  Transmission Date: 20230418
  Serious: Yes (Other)
  Sender: FDA-Public Use
  Company Number: GB-MHRA-EMIS-7411-eea0e54b-9371-4cfe-a27b-ab21b52e40a6

PATIENT
  Age: 62 Year
  Sex: Male
  Weight: 89.3 kg

DRUGS (4)
  1. BISOPROLOL [Suspect]
     Active Substance: BISOPROLOL
     Indication: Product used for unknown indication
     Dosage: 2.5 MILLIGRAM, ONCE A DAY
     Route: 065
     Dates: end: 20221101
  2. COMIRNATY [Concomitant]
     Active Substance: TOZINAMERAN
     Indication: COVID-19 immunisation
     Dosage: 0.3 MILLILITER
     Route: 030
     Dates: start: 20221014, end: 20221014
  3. FLUCELVAX TETRA [Concomitant]
     Active Substance: INFLUENZA VIRUS VACCINE
     Indication: Influenza immunisation
     Dosage: UNK
     Route: 030
     Dates: start: 20220927, end: 20220927
  4. HYDROXOCOBALAMIN [Concomitant]
     Active Substance: HYDROXOCOBALAMIN
     Indication: Vitamin B12
     Dosage: INDUCTION 1 MG 3 X WEEK - FOR 2 WEEKS- THEN 1 MG EVERY 12 WEEKS (EPS)
     Route: 030
     Dates: start: 20220909, end: 20221022

REACTIONS (3)
  - Acute myocardial infarction [Recovered/Resolved]
  - Diarrhoea [Recovered/Resolved]
  - Feeling abnormal [Recovered/Resolved]

NARRATIVE: CASE EVENT DATE: 20220301
